FAERS Safety Report 8812252 (Version 1)
Quarter: 2012Q4

REPORT INFORMATION
  Report Type: 
  Country: US (occurrence: US)
  Receive Date: 20120927
  Receipt Date: 20120927
  Transmission Date: 20130627
  Serious: Yes (Death, Other)
  Sender: FDA-Public Use
  Company Number: US-ROCHE-1124593

PATIENT
  Sex: Male

DRUGS (2)
  1. AVASTIN [Suspect]
     Indication: COLON CANCER
     Route: 065
     Dates: start: 200512
  2. XELODA [Suspect]
     Indication: COLON CANCER
     Route: 065

REACTIONS (3)
  - Death [Fatal]
  - Pleural effusion [Unknown]
  - Disease progression [Unknown]
